FAERS Safety Report 5702756-4 (Version None)
Quarter: 2008Q2

REPORT INFORMATION
  Report Type: 
  Country: None (occurrence: None)
  Receive Date: 20080411
  Receipt Date: 20080331
  Transmission Date: 20081010
  Serious: Yes (Hospitalization)
  Sender: FDA-Public Use
  Company Number: B0515163A

PATIENT
  Age: 32 Year
  Sex: Female

DRUGS (7)
  1. FORTUM [Suspect]
     Indication: WOUND
     Route: 042
     Dates: start: 20060306, end: 20060310
  2. CIFLOX [Suspect]
     Indication: WOUND
     Route: 048
     Dates: start: 20060306, end: 20060309
  3. FUCIDINE CAP [Suspect]
     Indication: WOUND
     Route: 048
     Dates: start: 20060303, end: 20060306
  4. NEORAL [Concomitant]
     Indication: RENAL TRANSPLANT
     Dosage: 200MG TWICE PER DAY
     Route: 048
  5. CORTANCYL [Concomitant]
     Indication: RENAL TRANSPLANT
     Dosage: 5MG PER DAY
     Route: 048
  6. CELLCEPT [Concomitant]
     Indication: RENAL TRANSPLANT
     Dosage: 500MG TWICE PER DAY
     Route: 048
  7. LANTUS [Concomitant]
     Indication: TYPE 1 DIABETES MELLITUS
     Dosage: 20IU PER DAY
     Route: 058

REACTIONS (7)
  - ALANINE AMINOTRANSFERASE INCREASED [None]
  - ASPARTATE AMINOTRANSFERASE INCREASED [None]
  - BLOOD ALKALINE PHOSPHATASE INCREASED [None]
  - DRUG TOXICITY [None]
  - GAMMA-GLUTAMYLTRANSFERASE INCREASED [None]
  - HEPATOCELLULAR INJURY [None]
  - LIVER FUNCTION TEST ABNORMAL [None]
